FAERS Safety Report 8394354-1 (Version None)
Quarter: 2012Q2

REPORT INFORMATION
  Report Type: 
  Country: None (occurrence: None)
  Receive Date: 20120530
  Receipt Date: 20120523
  Transmission Date: 20120825
  Serious: Yes (Hospitalization, Other)
  Sender: FDA-Public Use
  Company Number: US-BAYER-2011-120022

PATIENT
  Age: 18 Year
  Sex: Female
  Weight: 66 kg

DRUGS (4)
  1. ZYRTEC [Concomitant]
     Indication: MULTIPLE ALLERGIES
     Dosage: UNK
     Dates: start: 20080101
  2. YAZ [Suspect]
     Indication: ACNE
     Dosage: UNK
     Dates: start: 20080301, end: 20090901
  3. PREVACID [Concomitant]
     Indication: GASTROOESOPHAGEAL REFLUX DISEASE
     Dosage: UNK
     Dates: start: 20080101, end: 20090101
  4. NAPROXEN [Concomitant]
     Indication: HEADACHE
     Dosage: UNK
     Dates: start: 20080101

REACTIONS (7)
  - PANCREATITIS [None]
  - PAIN [None]
  - EMOTIONAL DISTRESS [None]
  - ANXIETY [None]
  - BILE DUCT STONE [None]
  - INJURY [None]
  - CHOLELITHIASIS [None]
